FAERS Safety Report 5857433-6 (Version None)
Quarter: 2008Q3

REPORT INFORMATION
  Report Type: 
  Country: None (occurrence: None)
  Receive Date: 20080825
  Receipt Date: 20080825
  Transmission Date: 20090109
  Serious: Yes (Other)
  Sender: FDA-Public Use
  Company Number: None

PATIENT
  Age: 47 Year
  Sex: Male
  Weight: 90.7194 kg

DRUGS (2)
  1. ZOCOR [Suspect]
     Indication: BLOOD CHOLESTEROL INCREASED
     Dosage: 80MG AND 40MG/ 40MG NIGHTLY PO
     Route: 048
     Dates: start: 20000615, end: 20080720
  2. VYTORIN [Suspect]
     Dosage: 80/10 AND 40/10 NIGHTLY PO
     Route: 048
     Dates: start: 20050615, end: 20070615

REACTIONS (1)
  - CARDIOMYOPATHY [None]
